FAERS Safety Report 17138958 (Version 1)
Quarter: 2019Q4

REPORT INFORMATION
  Report Type: Spontaneous
  Country: US (occurrence: US)
  Receive Date: 20191211
  Receipt Date: 20191211
  Transmission Date: 20200122
  Serious: Yes (Life-Threatening)
  Sender: FDA-Public Use
  Company Number: None

PATIENT
  Age: 50 Year
  Sex: Female

DRUGS (3)
  1. INDIAN HERB (BLACK SALVE) [Suspect]
     Active Substance: HERBALS\ZINC CHLORIDE
     Dosage: ?          OTHER ROUTE:APPLIED TO SPOT ON NOSE?
     Dates: start: 20180627, end: 20180703
  2. TRIAMCINOLON [Concomitant]
  3. AZITHROMYCIN ANHYDROUS. [Concomitant]
     Active Substance: AZITHROMYCIN ANHYDROUS

REACTIONS (3)
  - Nasal disorder [None]
  - Product complaint [None]
  - Skin erosion [None]

NARRATIVE: CASE EVENT DATE: 20180706
